FAERS Safety Report 15554618 (Version 1)
Quarter: 2018Q4

REPORT INFORMATION
  Report Type: Report from Study
  Country: KR (occurrence: KR)
  Receive Date: 20181026
  Receipt Date: 20181026
  Transmission Date: 20190205
  Serious: Yes (Death)
  Sender: FDA-Public Use
  Company Number: KR-ROCHE-2142323

PATIENT
  Age: 61 Year
  Sex: Female
  Weight: 53.7 kg

DRUGS (5)
  1. NESINA [Concomitant]
     Active Substance: ALOGLIPTIN BENZOATE
     Indication: DIABETES MELLITUS
     Route: 048
     Dates: start: 20180413, end: 20181015
  2. PENIRAMIN [Concomitant]
     Route: 030
     Dates: start: 20180619, end: 20180619
  3. TRASTUZUMAB. [Suspect]
     Active Substance: TRASTUZUMAB
     Indication: HER-2 POSITIVE BREAST CANCER
     Dosage: SUBSEQUENT DOSE RECEIVED ON 11/JUN/2018, 04/JUL/2018
     Route: 058
     Dates: start: 20180518, end: 20181001
  4. PENIRAMIN [Concomitant]
     Indication: PREMEDICATION
     Route: 030
     Dates: start: 20180518, end: 20180518
  5. METICON (SOUTH KOREA) [Concomitant]
     Indication: PROPHYLAXIS
     Dosage: INDICATION:PROPHYLAXIS OF GI TROUBLE
     Route: 048
     Dates: end: 20181015

REACTIONS (3)
  - Myalgia [Recovered/Resolved]
  - Dyspepsia [Recovered/Resolved]
  - Death [Fatal]

NARRATIVE: CASE EVENT DATE: 20180518
